FAERS Safety Report 10196725 (Version 1)
Quarter: 2014Q2

REPORT INFORMATION
  Report Type: Spontaneous
  Country: DK (occurrence: FR)
  Receive Date: 20140527
  Receipt Date: 20140527
  Transmission Date: 20141212
  Serious: Yes (Other)
  Sender: FDA-Public Use
  Company Number: FR-FRI-1000067560

PATIENT
  Age: 65 Year
  Sex: Female
  Weight: 56 kg

DRUGS (9)
  1. ESCITALOPRAM [Suspect]
     Route: 048
  2. ALFUZOSINE HYDROCHLORIDE [Suspect]
     Indication: BLADDER DILATATION
     Dosage: 10 MG
     Route: 048
     Dates: start: 20140106
  3. IMOVANE [Suspect]
     Dosage: 3.75 MG
     Route: 048
  4. ATARAX [Suspect]
     Dosage: 50 MG
     Route: 048
  5. METFORMIN HYDROCHLORIDE [Suspect]
     Dosage: 300 MG
     Route: 048
  6. KARDEGIC [Suspect]
     Dosage: 75 MG
     Route: 048
  7. LEVOTHYROX [Suspect]
     Dosage: 125 MCG
     Route: 048
  8. CRESTOR [Suspect]
     Dosage: 5 MG
     Route: 048
  9. APROVEL [Suspect]
     Dosage: 150 MG
     Route: 048

REACTIONS (4)
  - Nausea [Recovering/Resolving]
  - Dyspepsia [Recovering/Resolving]
  - Nasal congestion [Recovering/Resolving]
  - Fatigue [Recovering/Resolving]
